FAERS Safety Report 5050218-2 (Version None)
Quarter: 2006Q3

REPORT INFORMATION
  Report Type: 
  Country: None (occurrence: None)
  Receive Date: 20060713
  Receipt Date: 20060126
  Transmission Date: 20061208
  Serious: No
  Sender: FDA-Public Use
  Company Number: US-BRISTOL-MYERS SQUIBB COMPANY-13260914

PATIENT
  Age: 66 Year
  Sex: Female

DRUGS (2)
  1. CARBIDOPA + LEVODOPA CR TABS 50/200MG [Suspect]
     Indication: PARKINSON'S DISEASE
     Dosage: CARBIDOPA/LEVODOPA: TOOK 50/200 CR FOR 1 WEEK IN NOV 2005; RESTARTED ON SAME DOSE 01-JAN-06-ONGOING.
     Dates: start: 20051101
  2. COMTAN [Suspect]
     Indication: PARKINSON'S DISEASE
     Dosage: COMTAN: 200MG TABLET TID FROM 4/05 TO 11/05; STOPPED FOR 1 WEEK, THEN RESTARTED 11/05 TO 12/31/05
     Route: 048
     Dates: start: 20050401, end: 20051231

REACTIONS (3)
  - DYSKINESIA [None]
  - FALL [None]
  - MUSCLE SPASMS [None]
